FAERS Safety Report 10228138 (Version 1)
Quarter: 2014Q2

REPORT INFORMATION
  Report Type: Spontaneous
  Country: GB (occurrence: GB)
  Receive Date: 20140610
  Receipt Date: 20140610
  Transmission Date: 20141212
  Serious: Yes (Other)
  Sender: FDA-Public Use
  Company Number: GB-JNJFOC-20140603295

PATIENT
  Age: 86 Year
  Sex: Male
  Weight: 86 kg

DRUGS (10)
  1. XARELTO [Suspect]
     Indication: PRODUCT USED FOR UNKNOWN INDICATION
     Route: 048
     Dates: start: 20140513
  2. PARACETAMOL [Concomitant]
     Route: 065
     Dates: start: 20140508
  3. FUROSEMIDE [Concomitant]
     Route: 065
     Dates: start: 20140513
  4. COLECALCIFEROL [Concomitant]
     Route: 065
     Dates: start: 20140127
  5. MOMETASONE [Concomitant]
     Route: 065
     Dates: start: 20140324
  6. RAMIPRIL [Concomitant]
     Route: 065
     Dates: start: 20140508
  7. WARFARIN SODIUM [Concomitant]
     Route: 065
     Dates: start: 20140210
  8. FEBUXOSTAT [Concomitant]
     Route: 065
     Dates: start: 20140324
  9. BISOPROLOL [Concomitant]
     Route: 065
     Dates: start: 20140127
  10. LANSOPRAZOLE [Concomitant]
     Route: 065
     Dates: start: 20140508

REACTIONS (3)
  - Gastrointestinal haemorrhage [Recovering/Resolving]
  - Rectal haemorrhage [Unknown]
  - Adverse event [Unknown]
